FAERS Safety Report 17892661 (Version 2)
Quarter: 2020Q2

REPORT INFORMATION
  Report Type: Spontaneous
  Country: IT (occurrence: IT)
  Receive Date: 20200612
  Receipt Date: 20200622
  Transmission Date: 20200714
  Serious: Yes (Death, Life-Threatening, Hospitalization, Disabling, Other)
  Sender: FDA-Public Use
  Company Number: IT-BAXTER-2020BAX012011

PATIENT
  Age: 69 Year
  Sex: Female

DRUGS (5)
  1. DOXIL [Suspect]
     Active Substance: DOXORUBICIN HYDROCHLORIDE
     Indication: PRIMARY GASTROINTESTINAL FOLLICULAR LYMPHOMA
     Dosage: EVERY 21 DAYS, ON DAY 1; CYCLICAL
     Route: 065
     Dates: end: 201603
  2. CYCLOPHOSPHAMIDE. [Suspect]
     Active Substance: CYCLOPHOSPHAMIDE
     Indication: PRIMARY GASTROINTESTINAL FOLLICULAR LYMPHOMA
     Dosage: EVERY 21 DAYS, ON DAY 1; CYCLICAL
     Route: 065
     Dates: end: 201603
  3. VINCRISTINE [Suspect]
     Active Substance: VINCRISTINE
     Indication: PRIMARY GASTROINTESTINAL FOLLICULAR LYMPHOMA
     Dosage: EVERY 21 DAYS, ON DAY 1; CYCLICAL
     Route: 065
     Dates: end: 201603
  4. PREDNISONE. [Suspect]
     Active Substance: PREDNISONE
     Indication: PRIMARY GASTROINTESTINAL FOLLICULAR LYMPHOMA
     Dosage: EVERY 21 DAYS, ON DAYS 1 AND 5; CYCLICAL
     Route: 065
     Dates: end: 201603
  5. RITUXIMAB. [Suspect]
     Active Substance: RITUXIMAB
     Indication: PRIMARY GASTROINTESTINAL FOLLICULAR LYMPHOMA
     Dosage: BEFORE CYCLE 1, 2, 3, AND 5 OF CHOP ON DAY 1; CYCLICAL
     Route: 065

REACTIONS (2)
  - Progressive multifocal leukoencephalopathy [Fatal]
  - JC virus infection [Fatal]

NARRATIVE: CASE EVENT DATE: 201607
